FAERS Safety Report 5347438-6 (Version None)
Quarter: 2007Q2

REPORT INFORMATION
  Report Type: 
  Country: None (occurrence: None)
  Receive Date: 20070604
  Receipt Date: 20070604
  Transmission Date: 20071010
  Serious: Yes (Death)
  Sender: FDA-Public Use
  Company Number: None

PATIENT
  Age: 73 Year
  Sex: Female
  Weight: 62.5964 kg

DRUGS (4)
  1. PLAVIX [Suspect]
     Indication: ANGIOPLASTY
     Dosage: QD
     Dates: start: 20070412, end: 20070506
  2. PLAVIX [Suspect]
     Indication: STENT PLACEMENT
     Dosage: QD
     Dates: start: 20070412, end: 20070506
  3. ASPIRIN [Suspect]
     Indication: ANGIOPLASTY
     Dosage: QD
     Dates: start: 20070412, end: 20070506
  4. ASPIRIN [Suspect]
     Indication: STENT PLACEMENT
     Dosage: QD
     Dates: start: 20070412, end: 20070506

REACTIONS (7)
  - CEREBRAL HAEMORRHAGE [None]
  - CEREBROVASCULAR ACCIDENT [None]
  - GASTROINTESTINAL HAEMORRHAGE [None]
  - PARALYSIS [None]
  - PETECHIAE [None]
  - PLATELET COUNT DECREASED [None]
  - POST PROCEDURAL COMPLICATION [None]
